FAERS Safety Report 19595211 (Version 5)
Quarter: 2022Q3

REPORT INFORMATION
  Report Type: Report from Study
  Country: US (occurrence: US)
  Receive Date: 20210723
  Receipt Date: 20220729
  Transmission Date: 20221027
  Serious: No
  Sender: FDA-Public Use
  Company Number: NVSC2021US166667

PATIENT
  Sex: Male

DRUGS (1)
  1. COSENTYX [Suspect]
     Active Substance: SECUKINUMAB
     Indication: Product used for unknown indication
     Dosage: UNK UNK, UNKNOWN
     Route: 065

REACTIONS (2)
  - Illness [Unknown]
  - Hypersensitivity [Unknown]
